FAERS Safety Report 13321202 (Version 2)
Quarter: 2017Q1

REPORT INFORMATION
  Report Type: Spontaneous
  Country: DE (occurrence: DE)
  Receive Date: 20170310
  Receipt Date: 20170313
  Transmission Date: 20170428
  Serious: Yes (Disabling, Other)
  Sender: FDA-Public Use
  Company Number: DE-009507513-1703DEU001667

PATIENT
  Age: 63 Year
  Sex: Male

DRUGS (1)
  1. ISENTRESS [Suspect]
     Active Substance: RALTEGRAVIR POTASSIUM
     Indication: HIV INFECTION
     Dosage: UNK, BID
     Route: 048
     Dates: start: 2008

REACTIONS (3)
  - Diabetes mellitus [Not Recovered/Not Resolved]
  - Blood magnesium decreased [Unknown]
  - Polyneuropathy [Not Recovered/Not Resolved]
